FAERS Safety Report 9655460 (Version 2)
Quarter: 2013Q4

REPORT INFORMATION
  Report Type: Spontaneous
  Country: US (occurrence: US)
  Receive Date: 20131029
  Receipt Date: 20131029
  Transmission Date: 20140711
  Serious: Yes (Death, Other)
  Sender: FDA-Public Use
  Company Number: US-NAPPMUNDI-USA-2012-0089471

PATIENT
  Age: 17 Year
  Sex: Female
  Weight: 49.89 kg

DRUGS (8)
  1. OXYCODONE HYDROCHLORIDE (SIMILAR TO NDA 22-272) [Suspect]
     Indication: DRUG ABUSE
  2. HYDROCODONE /00060002/ [Suspect]
     Indication: DRUG ABUSE
     Dosage: UNK
     Dates: end: 20110715
  3. METHADONE [Suspect]
     Indication: DRUG ABUSE
     Dosage: UNK
     Dates: end: 20110715
  4. CARISOPRODOL [Suspect]
     Indication: DRUG ABUSE
     Dosage: UNK
     Dates: end: 20110715
  5. CANNABIS [Concomitant]
     Indication: PRODUCT USED FOR UNKNOWN INDICATION
     Dosage: UNK
     Dates: end: 20110715
  6. MEPROBAMATE [Concomitant]
     Indication: PRODUCT USED FOR UNKNOWN INDICATION
     Dosage: UNK
     Dates: end: 20110715
  7. ATROPINE [Concomitant]
     Indication: PRODUCT USED FOR UNKNOWN INDICATION
     Dosage: UNK
     Dates: end: 20110715
  8. BENZODIAZEPINE RELATED DRUGS [Concomitant]
     Indication: PRODUCT USED FOR UNKNOWN INDICATION
     Dosage: UNK
     Dates: end: 20110715

REACTIONS (2)
  - Overdose [Fatal]
  - Drug abuse [Unknown]
